FAERS Safety Report 21706570 (Version 1)
Quarter: 2022Q4

REPORT INFORMATION
  Report Type: Report from Study
  Country: US (occurrence: US)
  Receive Date: 20221209
  Receipt Date: 20221209
  Transmission Date: 20230112
  Serious: No
  Sender: FDA-Public Use
  Company Number: US-ABBVIE-4228937

PATIENT
  Sex: Male

DRUGS (1)
  1. IMBRUVICA [Suspect]
     Active Substance: IBRUTINIB
     Indication: Lymphadenopathy
     Dosage: FORM STRENGTH: 420 MILLIGRAM.?EVENT ONSET DATE: 2022 FOR GAINED SOME WEIGHT, HEMOGLOBIN INCREASED...
     Route: 048
     Dates: start: 20220913

REACTIONS (4)
  - Weight increased [Unknown]
  - Haemoglobin increased [Unknown]
  - Energy increased [Unknown]
  - Muscle mass [Unknown]
